FAERS Safety Report 8137870-X (Version None)
Quarter: 2012Q1

REPORT INFORMATION
  Report Type: 
  Country: None (occurrence: None)
  Receive Date: 20120215
  Receipt Date: 20120207
  Transmission Date: 20120608
  Serious: Yes (Hospitalization)
  Sender: FDA-Public Use
  Company Number: US-US-EMD SERONO, INC.-7016740

PATIENT
  Sex: Female

DRUGS (2)
  1. REBIF [Suspect]
     Route: 058
     Dates: end: 20110901
  2. REBIF [Suspect]
     Indication: MULTIPLE SCLEROSIS
     Route: 058
     Dates: start: 20100325, end: 20100831

REACTIONS (13)
  - MUSCLE SPASMS [None]
  - MUSCLE ENZYME INCREASED [None]
  - VOMITING [None]
  - FEELING ABNORMAL [None]
  - HEADACHE [None]
  - DIZZINESS [None]
  - SENSATION OF HEAVINESS [None]
  - HYPERTENSION [None]
  - PAIN IN EXTREMITY [None]
  - DIARRHOEA [None]
  - FEELING HOT [None]
  - COLD SWEAT [None]
  - INFLUENZA LIKE ILLNESS [None]
